FAERS Safety Report 8555715-0 (Version None)
Quarter: 2012Q3

REPORT INFORMATION
  Report Type: 
  Country: None (occurrence: None)
  Receive Date: 20120801
  Receipt Date: 20120723
  Transmission Date: 20120928
  Serious: Yes (Other)
  Sender: FDA-Public Use
  Company Number: US-009507513-1207USA010704

PATIENT

DRUGS (4)
  1. ZOCOR [Suspect]
     Route: 048
  2. METFORMIN HYDROCHLORIDE [Suspect]
     Dosage: 500 MG, BID
  3. LIPITOR [Suspect]
     Dosage: 20 MG, QD
  4. SOMAVERT [Suspect]
     Dosage: 15 MG, QD

REACTIONS (6)
  - PRURITUS [None]
  - VITAMIN D DEFICIENCY [None]
  - URTICARIA [None]
  - DRUG INEFFECTIVE [None]
  - RASH [None]
  - LICHEN PLANUS [None]
